FAERS Safety Report 8307635-4 (Version None)
Quarter: 2012Q2

REPORT INFORMATION
  Report Type: 
  Country: None (occurrence: None)
  Receive Date: 20120424
  Receipt Date: 20120419
  Transmission Date: 20120825
  Serious: Yes (Hospitalization)
  Sender: FDA-Public Use
  Company Number: US-B.I. PHARMACEUTICALS,INC./RIDGEFIELD-2012-BP-07495BP

PATIENT
  Sex: Male

DRUGS (1)
  1. PRADAXA [Suspect]
     Indication: ATRIAL FIBRILLATION
     Dosage: 75 MG
     Route: 048
     Dates: start: 20110801, end: 20111101

REACTIONS (6)
  - RASH GENERALISED [None]
  - BLOOD BLISTER [None]
  - ABDOMINAL DISTENSION [None]
  - HAEMATOCHEZIA [None]
  - CELLULITIS [None]
  - HEADACHE [None]
